FAERS Safety Report 8151061 (Version 3)
Quarter: 2013Q2

REPORT INFORMATION
  Report Type: Spontaneous
  Country: US (occurrence: US)
  Receive Date: 20110922
  Receipt Date: 20130410
  Transmission Date: 20140414
  Serious: Yes (Other)
  Sender: FDA-Public Use
  Company Number: US-ASTRAZENECA-2011SE12685

PATIENT
  Age: 544 Month
  Sex: Female

DRUGS (8)
  1. SEROQUEL [Suspect]
     Route: 048
     Dates: start: 20020121
  2. SEROQUEL [Suspect]
     Route: 048
     Dates: start: 20020923
  3. ALPRAZOLAM [Concomitant]
     Dates: start: 20020121
  4. ERYTHROMYCIN ES [Concomitant]
     Dates: start: 20020123
  5. REMERON [Concomitant]
     Dates: start: 20020218
  6. REMERON [Concomitant]
     Dates: start: 20020321
  7. PRILOSEC [Concomitant]
     Dates: start: 20020121
  8. AXID [Concomitant]
     Dates: start: 20020321

REACTIONS (3)
  - Pancreatitis [Unknown]
  - Diabetic coma [Unknown]
  - Type 2 diabetes mellitus [Unknown]
